FAERS Safety Report 19459344 (Version 1)
Quarter: 2021Q2

REPORT INFORMATION
  Report Type: Spontaneous
  Country: CA (occurrence: CA)
  Receive Date: 20210624
  Receipt Date: 20210624
  Transmission Date: 20210717
  Serious: Yes (Death, Other)
  Sender: FDA-Public Use
  Company Number: CA-SA-2021SA208636

PATIENT
  Sex: Male

DRUGS (4)
  1. TRESIBA [Suspect]
     Active Substance: INSULIN DEGLUDEC
     Indication: TYPE 2 DIABETES MELLITUS
     Dosage: UNK, QD
  2. APIDRA [Suspect]
     Active Substance: INSULIN GLULISINE
     Dosage: 8 IU, TID
     Route: 058
  3. APIDRA [Suspect]
     Active Substance: INSULIN GLULISINE
     Indication: TYPE 2 DIABETES MELLITUS
     Dosage: UNK
     Route: 058
  4. TRESIBA [Suspect]
     Active Substance: INSULIN DEGLUDEC
     Dosage: UNK, QD

REACTIONS (5)
  - Decreased appetite [Fatal]
  - Blood glucose decreased [Fatal]
  - Weight decreased [Fatal]
  - Decreased insulin requirement [Fatal]
  - Renal failure [Fatal]
